FAERS Safety Report 7357478-3 (Version None)
Quarter: 2011Q1

REPORT INFORMATION
  Report Type: 
  Country: None (occurrence: None)
  Receive Date: 20110317
  Receipt Date: 20100928
  Transmission Date: 20110831
  Serious: Yes (Hospitalization, Other)
  Sender: FDA-Public Use
  Company Number: US-BAYER-201027527NA

PATIENT
  Sex: Female
  Weight: 108.84 kg

DRUGS (5)
  1. UNCODEABLE ^INVESTIGATIONAL DRUG^ [Concomitant]
  2. SIMVASTATIN [Concomitant]
  3. HYDROCHLOROTHIAZIDE [Concomitant]
  4. AMOXICILLIN [Concomitant]
  5. YASMIN [Suspect]
     Indication: MENSTRUAL CYCLE MANAGEMENT
     Route: 048
     Dates: start: 20040801

REACTIONS (9)
  - MUSCULOSKELETAL PAIN [None]
  - APHASIA [None]
  - HEADACHE [None]
  - PAIN [None]
  - ISCHAEMIC CEREBRAL INFARCTION [None]
  - EYE DISORDER [None]
  - MENTAL DISORDER [None]
  - CEREBROVASCULAR ACCIDENT [None]
  - THROMBOSIS [None]
